FAERS Safety Report 24531584 (Version 1)
Quarter: 2024Q4

REPORT INFORMATION
  Report Type: Report from Study
  Country: US (occurrence: US)
  Receive Date: 20241022
  Receipt Date: 20241022
  Transmission Date: 20250114
  Serious: No
  Sender: ROCHE
  Company Number: US-ROCHE-3538062

PATIENT
  Age: 35 Year
  Sex: Female

DRUGS (10)
  1. PULMOZYME [Suspect]
     Active Substance: DORNASE ALFA
     Indication: Respiratory disorder
     Dosage: INHALE CONTENT ON ONE VIAL VIA NEBULIZER ONCE DAILY? STRENGTH: 1 MG/ML
     Route: 055
  2. PULMOZYME [Suspect]
     Active Substance: DORNASE ALFA
     Indication: Asphyxia
  3. PULMOZYME [Suspect]
     Active Substance: DORNASE ALFA
     Indication: Foreign body in respiratory tract
  4. MUCOMYST [Concomitant]
     Active Substance: ACETYLCYSTEINE
  5. SYMBICORT [Concomitant]
     Active Substance: BUDESONIDE\FORMOTEROL FUMARATE DIHYDRATE
  6. DULERA [Concomitant]
     Active Substance: FORMOTEROL FUMARATE DIHYDRATE\MOMETASONE FUROATE
  7. ATROVENT [Concomitant]
     Active Substance: IPRATROPIUM BROMIDE
  8. XOPENEX [Concomitant]
     Active Substance: LEVALBUTEROL HYDROCHLORIDE
  9. TEZSPIRE (UNITED STATES) [Concomitant]
  10. ZILEUTON [Concomitant]
     Active Substance: ZILEUTON

REACTIONS (2)
  - Off label use [Unknown]
  - No adverse event [Unknown]
